FAERS Safety Report 25199084 (Version 1)
Quarter: 2025Q2

REPORT INFORMATION
  Report Type: Spontaneous
  Country: US (occurrence: US)
  Receive Date: 20250415
  Receipt Date: 20250415
  Transmission Date: 20250716
  Serious: Yes (Hospitalization)
  Sender: TEVA
  Company Number: US-TEVA-VS-3319194

PATIENT
  Age: 66 Year
  Sex: Female

DRUGS (1)
  1. AJOVY [Suspect]
     Active Substance: FREMANEZUMAB-VFRM
     Indication: Migraine
     Dosage: DOSE: 225 MG/1.5 ML, FORM STRENGTH:  225MG/1.5ML, INJECTABLE SOLUTION
     Route: 058

REACTIONS (1)
  - COVID-19 [Unknown]
